FAERS Safety Report 5332534-X (Version None)
Quarter: 2007Q2

REPORT INFORMATION
  Report Type: 
  Country: None (occurrence: None)
  Receive Date: 20070521
  Receipt Date: 20070508
  Transmission Date: 20071010
  Serious: Yes (Death)
  Sender: FDA-Public Use
  Company Number: GXKR2007SE04168

PATIENT
  Age: 79 Year
  Sex: Female

DRUGS (2)
  1. WARFARIN SODIUM [Suspect]
  2. SERTRALINE [Suspect]
     Dosage: 25 MG

REACTIONS (3)
  - CEREBRAL HAEMORRHAGE [None]
  - DRUG INTERACTION [None]
  - INTERNATIONAL NORMALISED RATIO DECREASED [None]
